FAERS Safety Report 9539194 (Version 1)
Quarter: 2013Q3

REPORT INFORMATION
  Report Type: Spontaneous
  Country: US (occurrence: None)
  Receive Date: 20130917
  Receipt Date: 20130917
  Transmission Date: 20140515
  Serious: Yes (Hospitalization, Other)
  Sender: FDA-Public Use
  Company Number: 2013P1019172

PATIENT
  Age: 61 Year
  Sex: Female
  Weight: 61.24 kg

DRUGS (7)
  1. BUTALBITAL ACETAMINOPHEN + CAFFEINE [Suspect]
     Indication: MIGRAINE
     Dosage: 1-1.5 TABLETS; PRN; PO
     Route: 048
     Dates: end: 201303
  2. ACETAMINOPHEN, BUTALBITAL, AND CAFFEINE [Suspect]
     Indication: MIGRAINE
     Dosage: 0.5 TABLET; X1; PO
     Dates: start: 201303, end: 201307
  3. MORPHINE [Suspect]
     Route: 042
     Dates: start: 201209, end: 201209
  4. POTASSIUM [Suspect]
     Route: 042
     Dates: start: 201209, end: 201209
  5. OXYCONTIN [Concomitant]
  6. PERCOCET [Concomitant]
  7. ASPIRIN [Concomitant]

REACTIONS (8)
  - Abdominal pain [None]
  - Burning sensation [None]
  - Infusion site vesicles [None]
  - Chest pain [None]
  - Vomiting [None]
  - Convulsion [None]
  - Visual impairment [None]
  - Diplopia [None]
